FAERS Safety Report 25818515 (Version 1)
Quarter: 2025Q3

REPORT INFORMATION
  Report Type: Spontaneous
  Country: EU (occurrence: EU)
  Receive Date: 20250918
  Receipt Date: 20250918
  Transmission Date: 20251021
  Serious: Yes (Death, Other)
  Sender: TAKEDA
  Company Number: EU-CHEPLA-2025010633

PATIENT
  Age: 7 Decade

DRUGS (12)
  1. MARIBAVIR [Suspect]
     Active Substance: MARIBAVIR
     Indication: Product used for unknown indication
     Dosage: 400 MILLIGRAM, BID
  2. GANCICLOVIR [Suspect]
     Active Substance: GANCICLOVIR
     Indication: Cytomegalovirus infection
     Dosage: 5 MILLIGRAM/KILLOGRAM, BID
  3. GANCICLOVIR [Suspect]
     Active Substance: GANCICLOVIR
  4. VALGANCICLOVIR [Suspect]
     Active Substance: VALGANCICLOVIR
     Indication: Cytomegalovirus colitis
     Dosage: 450 MILLIGRAM, BID
  5. FOSCARNET [Suspect]
     Active Substance: FOSCARNET
     Indication: Product used for unknown indication
     Dosage: 90 MILLIGRAM/KILLOGRAM, BID
  6. FLUDARABINE [Concomitant]
     Active Substance: FLUDARABINE PHOSPHATE
  7. BUSULFAN [Concomitant]
     Active Substance: BUSULFAN
  8. TACROLIMUS [Concomitant]
     Active Substance: TACROLIMUS
     Indication: Prophylaxis against graft versus host disease
  9. MYCOPHENOLATE MOFETIL [Concomitant]
     Active Substance: MYCOPHENOLATE MOFETIL
     Indication: Prophylaxis against graft versus host disease
  10. MYCOPHENOLATE MOFETIL [Concomitant]
     Active Substance: MYCOPHENOLATE MOFETIL
     Dosage: 2 MILLIGRAM/KILOGRAM, QD
  11. METHYLPREDNISOLONE [Concomitant]
     Active Substance: METHYLPREDNISOLONE
  12. METHYLPREDNISOLONE [Concomitant]
     Active Substance: METHYLPREDNISOLONE
     Dosage: 2 MILLIGRAM/KILOGRAM, QD

REACTIONS (9)
  - Immunosuppression [Unknown]
  - Enterocolitis [Unknown]
  - Streptococcal bacteraemia [Unknown]
  - Epstein-Barr virus infection [Unknown]
  - Drug ineffective [Unknown]
  - Viral test positive [Unknown]
  - Gene mutation [Unknown]
  - Off label use [Unknown]
  - Pulmonary tuberculosis [Fatal]
